FAERS Safety Report 4475139-5 (Version None)
Quarter: 2004Q4

REPORT INFORMATION
  Report Type: 
  Country: None (occurrence: None)
  Receive Date: 20041013
  Receipt Date: 20041013
  Transmission Date: 20050328
  Serious: Yes (Other)
  Sender: FDA-Public Use
  Company Number: None

PATIENT
  Age: 33 Year
  Sex: Female
  Weight: 70.3075 kg

DRUGS (1)
  1. DEPO-PROVERA [Suspect]
     Indication: CONTRACEPTION
     Dosage: 1 INTRAMUSCU
     Route: 030
     Dates: start: 20040701, end: 20041012

REACTIONS (6)
  - ABDOMINAL PAIN UPPER [None]
  - FATIGUE [None]
  - LOSS OF LIBIDO [None]
  - MENORRHAGIA [None]
  - MUSCLE CRAMP [None]
  - OLIGOMENORRHOEA [None]
